FAERS Safety Report 4880408-0 (Version None)
Quarter: 2005Q4

REPORT INFORMATION
  Report Type: 
  Country: None (occurrence: None)
  Receive Date: 20051223
  Receipt Date: 20050914
  Transmission Date: 20060501
  Serious: No
  Sender: FDA-Public Use
  Company Number: 05P-163-0295474-00

PATIENT
  Age: 63 Year
  Sex: Female
  Weight: 76.2043 kg

DRUGS (23)
  1. HUMIRA [Suspect]
     Indication: RHEUMATOID ARTHRITIS
     Dosage: 40 MG, 1 IN 2 WK, SUBCUTANEOUS
     Route: 058
     Dates: start: 20030101
  2. PREDNISONE [Concomitant]
  3. METHOTREXATE [Concomitant]
  4. MELOXICAM [Concomitant]
  5. FORTEO [Concomitant]
  6. ALLOPURINOL [Concomitant]
  7. ESTRACE [Concomitant]
  8. METOPROLOL [Concomitant]
  9. LORCET-HD [Concomitant]
  10. FOLIC ACID [Concomitant]
  11. IRON [Concomitant]
  12. MULTIVITAMIN [Concomitant]
  13. CALCIUM GLUCONATE [Concomitant]
  14. ASPIRIN [Concomitant]
  15. BUMETANIDE [Concomitant]
  16. POTASSIUM CHLORIDE [Concomitant]
  17. ROSIGLITAZONE MALEATE [Concomitant]
  18. LORTREL 5/10 [Concomitant]
  19. CRESTOR [Concomitant]
  20. CYCLOBENZAPRINE HCL [Concomitant]
  21. CLOPIDOGREL BISULFATE [Concomitant]
  22. RETINOL [Concomitant]
  23. RABEPRAZOLE SODIUM [Concomitant]

REACTIONS (6)
  - ABDOMINAL PAIN UPPER [None]
  - HEADACHE [None]
  - INJECTION SITE ERYTHEMA [None]
  - INJECTION SITE PRURITUS [None]
  - INJECTION SITE RASH [None]
  - NECK PAIN [None]
